FAERS Safety Report 23966220 (Version 1)
Quarter: 2024Q2

REPORT INFORMATION
  Report Type: Spontaneous
  Country: CH (occurrence: CH)
  Receive Date: 20240612
  Receipt Date: 20240612
  Transmission Date: 20240716
  Serious: Yes (Other)
  Sender: FDA-Public Use
  Company Number: CH-STRIDES ARCOLAB LIMITED-2024SP006641

PATIENT
  Age: 29 Year
  Sex: Female

DRUGS (6)
  1. ALBENDAZOLE [Suspect]
     Active Substance: ALBENDAZOLE
     Indication: Orbital cyst
     Dosage: UNK, (BEFORE SURGERY)
     Route: 065
  2. ALBENDAZOLE [Suspect]
     Active Substance: ALBENDAZOLE
     Indication: Echinococciasis
     Dosage: 300 MILLIGRAM, EVERY 12 HRS
     Route: 065
  3. ALBENDAZOLE [Suspect]
     Active Substance: ALBENDAZOLE
     Dosage: UNK, (REDUCED)
     Route: 065
  4. PRAZIQUANTEL [Suspect]
     Active Substance: PRAZIQUANTEL
     Indication: Orbital cyst
     Dosage: UNK, (BEFORE SURGERY)
     Route: 065
  5. PRAZIQUANTEL [Suspect]
     Active Substance: PRAZIQUANTEL
     Indication: Echinococciasis
     Dosage: 3000 MILLIGRAM, EVERY 24 H
     Route: 065
  6. PRAZIQUANTEL [Suspect]
     Active Substance: PRAZIQUANTEL
     Dosage: UNK, (REDUCED)
     Route: 065

REACTIONS (2)
  - Angina pectoris [Unknown]
  - Vomiting [Unknown]
